FAERS Safety Report 21857218 (Version 1)
Quarter: 2023Q1

REPORT INFORMATION
  Report Type: Spontaneous
  Country: FR (occurrence: FR)
  Receive Date: 20230113
  Receipt Date: 20230113
  Transmission Date: 20230417
  Serious: Yes (Hospitalization)
  Sender: FDA-Public Use
  Company Number: FR-AFSSAPS-SE20221341

PATIENT
  Age: 29 Year
  Sex: Female
  Weight: 33 kg

DRUGS (2)
  1. SERTRALINE [Suspect]
     Active Substance: SERTRALINE HYDROCHLORIDE
     Indication: Anorexia nervosa
     Dosage: UNK
     Route: 065
     Dates: end: 20221207
  2. MIANSERIN HYDROCHLORIDE [Suspect]
     Active Substance: MIANSERIN HYDROCHLORIDE
     Indication: Anorexia nervosa
     Dosage: UNK
     Route: 065
     Dates: start: 20221021, end: 20221207

REACTIONS (2)
  - Pneumonia [Recovered/Resolved]
  - Pancytopenia [Recovered/Resolved]

NARRATIVE: CASE EVENT DATE: 20221207
